FAERS Safety Report 8426617-5 (Version None)
Quarter: 2012Q2

REPORT INFORMATION
  Report Type: 
  Country: None (occurrence: None)
  Receive Date: 20120611
  Receipt Date: 20120530
  Transmission Date: 20120825
  Serious: Yes (Other)
  Sender: FDA-Public Use
  Company Number: US-PFIZER INC-2012117409

PATIENT
  Sex: Female
  Weight: 74.8 kg

DRUGS (10)
  1. PREMPRO [Suspect]
     Indication: VAGINAL DISORDER
     Dosage: 1 DF, ALTERNATE DAY
     Route: 048
  2. MAXALT [Concomitant]
     Indication: MIGRAINE
     Dosage: UNK
  3. MOTRIN [Concomitant]
     Indication: ARTHRITIS
     Dosage: UNK, 1X/DAY
  4. CALCIUM [Concomitant]
     Dosage: UNK
  5. MAXALT-MLT [Concomitant]
     Indication: MIGRAINE
     Dosage: UNK, AS NEEDED
  6. FOLIC ACID [Concomitant]
     Dosage: UNK
  7. PREMPRO [Suspect]
     Indication: HORMONE REPLACEMENT THERAPY
     Dosage: 1 DF (0.3/1.5MG) ONCE A DAY, 1X/DAY
     Route: 048
  8. PREMPRO [Suspect]
     Indication: HORMONE LEVEL ABNORMAL
     Dosage: UNK
  9. NAPROXEN (ALEVE) [Concomitant]
     Indication: ARTHRITIS
     Dosage: 220 MG, 1X/DAY
  10. VITAMIN D [Concomitant]
     Dosage: UNK

REACTIONS (8)
  - MALAISE [None]
  - HEADACHE [None]
  - HYPERTENSION [None]
  - MOOD ALTERED [None]
  - ABDOMINAL PAIN [None]
  - INAPPROPRIATE SCHEDULE OF DRUG ADMINISTRATION [None]
  - MIGRAINE [None]
  - GENERAL PHYSICAL HEALTH DETERIORATION [None]
